FAERS Safety Report 10195636 (Version 1)
Quarter: 2014Q2

REPORT INFORMATION
  Report Type: Spontaneous
  Country: FR (occurrence: FR)
  Receive Date: 20140527
  Receipt Date: 20140527
  Transmission Date: 20141212
  Serious: Yes (Hospitalization)
  Sender: FDA-Public Use
  Company Number: FR-PFIZER INC-2014142825

PATIENT
  Age: 49 Year
  Sex: Female
  Weight: 56 kg

DRUGS (3)
  1. EUPANTOL [Suspect]
     Dosage: 40 MG, DAILY
     Route: 042
     Dates: start: 20140109, end: 20140210
  2. LOVENOX [Suspect]
     Dosage: 4000 IU, DAILY
     Route: 058
     Dates: start: 20140114, end: 20140206
  3. CALCIPARINE [Concomitant]
     Dosage: UNK
     Dates: end: 20140114

REACTIONS (2)
  - Thrombocytosis [Recovered/Resolved]
  - Thrombocytopenia [Recovered/Resolved]
